FAERS Safety Report 6162506-7 (Version None)
Quarter: 2009Q2

REPORT INFORMATION
  Report Type: 
  Country: None (occurrence: None)
  Receive Date: 20090421
  Receipt Date: 20060803
  Transmission Date: 20091009
  Serious: No
  Sender: FDA-Public Use
  Company Number: US-SOLVAY-00206002536

PATIENT
  Age: 521 Month
  Sex: Female

DRUGS (2)
  1. ANDROGEL [Suspect]
     Indication: ACCIDENTAL EXPOSURE
     Dosage: DAILY DOSE: 10 GRAM(S)
     Route: 062
     Dates: start: 20060501, end: 20060101
  2. ANDROGEL [Suspect]
     Dosage: DAILY DOSE: 10 GRAM(S) AS NEEDED
     Route: 062
     Dates: start: 20060101

REACTIONS (1)
  - HAIR GROWTH ABNORMAL [None]
